FAERS Safety Report 18400580 (Version 3)
Quarter: 2021Q1

REPORT INFORMATION
  Report Type: Report from Study
  Country: NL (occurrence: NL)
  Receive Date: 20201019
  Receipt Date: 20210115
  Transmission Date: 20210419
  Serious: Yes (Other)
  Sender: FDA-Public Use
  Company Number: NL-AMGEN-NLDSL2020165920

PATIENT
  Age: 67 Year
  Sex: Male

DRUGS (12)
  1. CLINDAMYCINE [CLINDAMYCIN] [Concomitant]
     Active Substance: CLINDAMYCIN
     Dosage: 300 MILLIGRAM,  3D1C
  2. CHLORTALIDONE [Concomitant]
     Active Substance: CHLORTHALIDONE
     Dosage: 25 MILLIGRAM, QD
  3. DEGARELIX [Concomitant]
     Active Substance: DEGARELIX
     Dosage: UNK, 80MG FL TOEB UNK
  4. ENALAPRIL [Concomitant]
     Active Substance: ENALAPRIL
     Dosage: 20 MILLIGRAM, BID
  5. PANTOPRAZOL [PANTOPRAZOLE] [Concomitant]
     Active Substance: PANTOPRAZOLE
     Dosage: 20 MILLIGRAM, QD
  6. XGEVA [Suspect]
     Active Substance: DENOSUMAB
     Indication: PROPHYLAXIS
     Dosage: 120 MILLIGRAM (1.7 ML), Q4WK
     Route: 058
     Dates: start: 20200103, end: 20201204
  7. CICLOPIROX. [Concomitant]
     Active Substance: CICLOPIROX
     Dosage: UNK, 10MG/G 2XD
  8. ENALAPRIL [Concomitant]
     Active Substance: ENALAPRIL
     Dosage: 40 MILLIGRAM, QD
  9. MIRABEGRON [Concomitant]
     Active Substance: MIRABEGRON
     Dosage: 50 MILLIGRAM, QD
  10. ENZALUTAMIDE [Concomitant]
     Active Substance: ENZALUTAMIDE
     Dosage: 40 MILLIGRAM, QID
  11. CALCIUM CARBONATE W/VITAMIN D [CALCIUM CARBONATE;COLECALCIFEROL] [Concomitant]
     Active Substance: CALCIUM CARBONATE\CHOLECALCIFEROL
     Dosage: 1000 MILLIGRAM, QD, (2,5G/800IE CA)
  12. MACROGOL [Concomitant]
     Active Substance: POLYETHYLENE GLYCOLS
     Dosage: UNK, SALTS PDR V DRANK (MOVIC/MOLAX/LAXT/GEN)

REACTIONS (3)
  - Osteitis [Unknown]
  - Dysuria [Recovered/Resolved]
  - Jaw fracture [Recovered/Resolved]

NARRATIVE: CASE EVENT DATE: 20200915
